FAERS Safety Report 11913252 (Version 3)
Quarter: 2019Q4

REPORT INFORMATION
  Report Type: Spontaneous
  Country: US (occurrence: US)
  Receive Date: 20160113
  Receipt Date: 20191220
  Transmission Date: 20200122
  Serious: Yes (Other)
  Sender: FDA-Public Use
  Company Number: US-PFIZER INC-2016005058

PATIENT
  Age: 62 Year
  Sex: Female
  Weight: 75 kg

DRUGS (7)
  1. LISINOPRIL. [Concomitant]
     Active Substance: LISINOPRIL
     Indication: HYPERTENSION
     Dosage: 40 MG, DAILY
     Route: 048
  2. HYDROCHLOROTHIAZIDE. [Concomitant]
     Active Substance: HYDROCHLOROTHIAZIDE
     Indication: HYPERTENSION
     Dosage: 12.5 MG, DAILY
     Route: 048
  3. SIMVASTATIN. [Suspect]
     Active Substance: SIMVASTATIN
     Indication: BLOOD CHOLESTEROL INCREASED
     Dosage: 20 MG, DAILY
  4. LIPITOR [Suspect]
     Active Substance: ATORVASTATIN CALCIUM
     Indication: LOW DENSITY LIPOPROTEIN INCREASED
     Dosage: 10 MG, DAILY
     Route: 048
     Dates: start: 2007, end: 2015
  5. LIPITOR [Suspect]
     Active Substance: ATORVASTATIN CALCIUM
     Indication: CARDIOVASCULAR EVENT PROPHYLAXIS
  6. ASPIRIN. [Concomitant]
     Active Substance: ASPIRIN
     Indication: HYPERTENSION
     Dosage: 81 MG, DAILY
     Route: 048
  7. LIPITOR [Suspect]
     Active Substance: ATORVASTATIN CALCIUM
     Indication: BLOOD CHOLESTEROL INCREASED

REACTIONS (4)
  - Menopausal depression [Not Recovered/Not Resolved]
  - Type 2 diabetes mellitus [Not Recovered/Not Resolved]
  - Vulvovaginal dryness [Not Recovered/Not Resolved]
  - Sexual dysfunction [Not Recovered/Not Resolved]

NARRATIVE: CASE EVENT DATE: 200908
